FAERS Safety Report 7914636-4 (Version None)
Quarter: 2011Q4

REPORT INFORMATION
  Report Type: 
  Country: None (occurrence: None)
  Receive Date: 20111115
  Receipt Date: 20111108
  Transmission Date: 20120403
  Serious: Yes (Disabling)
  Sender: FDA-Public Use
  Company Number: PHHY2011CL098808

PATIENT
  Age: 82 Year
  Sex: Female

DRUGS (4)
  1. LOSARTAN [Concomitant]
  2. CALCIUM PLUS [Concomitant]
  3. ACETAMINOPHEN [Concomitant]
  4. ZOLEDRONOC ACID [Suspect]
     Indication: OSTEOPOROSIS
     Dosage: 5 MG, UNK
     Route: 042
     Dates: start: 20100101

REACTIONS (1)
  - TENDON INJURY [None]
